FAERS Safety Report 16646940 (Version 1)
Quarter: 2019Q3

REPORT INFORMATION
  Report Type: Other
  Country: GB (occurrence: GB)
  Receive Date: 20190730
  Receipt Date: 20190730
  Transmission Date: 20191004
  Serious: Yes (Disabling)
  Sender: FDA-Public Use
  Company Number: GB-GLENMARK PHARMACEUTICALS-2019GMK042273

PATIENT

DRUGS (3)
  1. BECLOMETASONE [Concomitant]
     Active Substance: BECLOMETHASONE DIPROPIONATE
     Indication: PRODUCT USED FOR UNKNOWN INDICATION
     Dosage: UNK
     Route: 065
  2. SALBUTAMOL [Concomitant]
     Active Substance: ALBUTEROL
     Indication: PRODUCT USED FOR UNKNOWN INDICATION
     Dosage: UNK
     Route: 065
  3. MONTELUKAST SODIUM. [Suspect]
     Active Substance: MONTELUKAST SODIUM
     Indication: UPPER-AIRWAY COUGH SYNDROME
     Dosage: 1 DF, OD (AT NIGHT)
     Route: 048
     Dates: start: 20190603, end: 20190607

REACTIONS (4)
  - Asthenia [Recovered/Resolved]
  - Fatigue [Recovered/Resolved]
  - Coordination abnormal [Recovered/Resolved]
  - Disturbance in attention [Recovered/Resolved]

NARRATIVE: CASE EVENT DATE: 20190605
